FAERS Safety Report 18964038 (Version 2)
Quarter: 2021Q4

REPORT INFORMATION
  Report Type: Spontaneous
  Country: GB (occurrence: GB)
  Receive Date: 20210303
  Receipt Date: 20211221
  Transmission Date: 20220304
  Serious: Yes (Other)
  Sender: FDA-Public Use
  Company Number: None

PATIENT
  Age: 80 Year
  Sex: Male

DRUGS (3)
  1. ACYCLOVIR [Suspect]
     Active Substance: ACYCLOVIR
     Route: 065
  2. EDOXABAN [Concomitant]
     Active Substance: EDOXABAN
     Dates: start: 20190101
  3. BISOPROLOL [Concomitant]
     Active Substance: BISOPROLOL
     Indication: Hypertension
     Dates: start: 20120101

REACTIONS (3)
  - Oral herpes [Not Recovered/Not Resolved]
  - Pyrexia [Unknown]
  - Lip swelling [Unknown]

NARRATIVE: CASE EVENT DATE: 20210205
